FAERS Safety Report 5526104-8 (Version None)
Quarter: 2007Q4

REPORT INFORMATION
  Report Type: 
  Country: None (occurrence: None)
  Receive Date: 20071126
  Receipt Date: 20071116
  Transmission Date: 20080405
  Serious: Yes (Other)
  Sender: FDA-Public Use
  Company Number: US-GILEAD-2007-0014390

PATIENT
  Sex: Male
  Weight: 71.278 kg

DRUGS (5)
  1. ATRIPLA [Suspect]
     Indication: HIV INFECTION
     Route: 048
     Dates: start: 20070707, end: 20070815
  2. GLIPIZIDE [Concomitant]
     Route: 048
     Dates: start: 20040101
  3. CLARITIN [Concomitant]
     Route: 048
  4. TRIAMCINOLONE [Concomitant]
     Route: 061
     Dates: start: 20070723
  5. BENADRYL [Concomitant]
     Route: 048
     Dates: start: 20070723, end: 20070815

REACTIONS (1)
  - AGRANULOCYTOSIS [None]
